FAERS Safety Report 25193906 (Version 1)
Quarter: 2025Q2

REPORT INFORMATION
  Report Type: Report from Study
  Country: DE (occurrence: DE)
  Receive Date: 20250414
  Receipt Date: 20250414
  Transmission Date: 20250716
  Serious: Yes (Death, Hospitalization)
  Sender: ABBVIE
  Company Number: DE-ABBVIE-6229337

PATIENT
  Sex: Female

DRUGS (1)
  1. FOSCARBIDOPA\FOSLEVODOPA [Suspect]
     Active Substance: FOSCARBIDOPA\FOSLEVODOPA
     Indication: Parkinson^s disease
     Route: 058
     Dates: start: 20240201

REACTIONS (2)
  - Pneumonia [Fatal]
  - Dysphagia [Fatal]
